FAERS Safety Report 8791512 (Version 1)
Quarter: 2012Q4

REPORT INFORMATION
  Report Type: Spontaneous
  Country: US (occurrence: None)
  Receive Date: 20120914
  Receipt Date: 20120914
  Transmission Date: 20130627
  Serious: Yes (Other)
  Sender: FDA-Public Use
  Company Number: None

PATIENT
  Age: 38 Year
  Sex: Male
  Weight: 81.65 kg

DRUGS (1)
  1. NAMENDA [Suspect]
     Indication: MOOD DISORDER NOS
     Route: 048

REACTIONS (3)
  - Off label use [None]
  - Anorgasmia [None]
  - Insomnia [None]
